FAERS Safety Report 4718064-4 (Version None)
Quarter: 2005Q3

REPORT INFORMATION
  Report Type: 
  Country: None (occurrence: None)
  Receive Date: 20050718
  Receipt Date: 20050718
  Transmission Date: 20060218
  Serious: Yes (Hospitalization)
  Sender: FDA-Public Use
  Company Number: None

PATIENT
  Age: 84 Year
  Sex: Male
  Weight: 84.8226 kg

DRUGS (1)
  1. WARFARIN    5MG [Suspect]
     Indication: ATRIAL FIBRILLATION
     Dosage: 5MG  DAILY  ORAL;  12.5 MG  M,W,SUN  ORAL
     Route: 048

REACTIONS (6)
  - DRUG TOXICITY [None]
  - FALL [None]
  - GASTROINTESTINAL HAEMORRHAGE [None]
  - LETHARGY [None]
  - SOMNOLENCE [None]
  - URINARY INCONTINENCE [None]
